FAERS Safety Report 6175140-X (Version None)
Quarter: 2009Q2

REPORT INFORMATION
  Report Type: 
  Country: None (occurrence: None)
  Receive Date: 20090430
  Receipt Date: 20090107
  Transmission Date: 20091009
  Serious: No
  Sender: FDA-Public Use
  Company Number: US-ASTRAZENECA-2009UW00536

PATIENT
  Age: 58 Year
  Sex: Male
  Weight: 99.8 kg

DRUGS (11)
  1. NEXIUM [Suspect]
     Indication: ABDOMINAL DISCOMFORT
     Route: 048
  2. METOPROLOL TARTRATE [Concomitant]
  3. PRAVASTATIN [Concomitant]
  4. AMLODIPINE [Concomitant]
  5. ZOLOFT [Concomitant]
  6. REGLAN [Concomitant]
  7. LISINOPRIL [Concomitant]
  8. IMDUR [Concomitant]
  9. ASPIRIN [Concomitant]
  10. BIO-FLEX [Concomitant]
  11. STOOL SOFTENER [Concomitant]

REACTIONS (2)
  - FREQUENT BOWEL MOVEMENTS [None]
  - PRODUCT QUALITY ISSUE [None]
